FAERS Safety Report 14654272 (Version 1)
Quarter: 2018Q1

REPORT INFORMATION
  Report Type: Spontaneous
  Country: GB (occurrence: GB)
  Receive Date: 20180319
  Receipt Date: 20180319
  Transmission Date: 20180509
  Serious: Yes (Other)
  Sender: FDA-Public Use
  Company Number: PHHY2018GB045813

PATIENT
  Sex: Female

DRUGS (1)
  1. COCODAMOL [Suspect]
     Active Substance: ACETAMINOPHEN\CODEINE PHOSPHATE
     Indication: PRODUCT USED FOR UNKNOWN INDICATION
     Route: 065
     Dates: start: 20180116, end: 20180117

REACTIONS (4)
  - Rash macular [Unknown]
  - Rash pruritic [Unknown]
  - Hypersensitivity [Unknown]
  - Rash [Unknown]
